FAERS Safety Report 4575708-8 (Version None)
Quarter: 2005Q1

REPORT INFORMATION
  Report Type: 
  Country: None (occurrence: None)
  Receive Date: 20050209
  Receipt Date: 20050202
  Transmission Date: 20050727
  Serious: Yes (Hospitalization)
  Sender: FDA-Public Use
  Company Number: TW-JNJFOC-20050201455

PATIENT
  Age: 10 Month
  Sex: Female
  Weight: 6 kg

DRUGS (4)
  1. ACETAMINOPHEN [Suspect]
  2. ACETAMINOPHEN [Suspect]
  3. IBUPROFEN [Concomitant]
  4. KETOPROFEN [Concomitant]

REACTIONS (2)
  - HEPATIC FAILURE [None]
  - OVERDOSE [None]
